FAERS Safety Report 15732481 (Version 1)
Quarter: 2018Q4

REPORT INFORMATION
  Report Type: Spontaneous
  Country: US (occurrence: US)
  Receive Date: 20181217
  Receipt Date: 20181217
  Transmission Date: 20190205
  Serious: Yes (Hospitalization)
  Sender: FDA-Public Use
  Company Number: None

PATIENT
  Age: 70 Year
  Sex: Male

DRUGS (22)
  1. CYCLOBENZAPR TAB 10MG [Concomitant]
  2. DHEA TAB 25MG [Concomitant]
  3. CINNAMON CAP 500MG [Concomitant]
  4. METOPROLOL SUC TAB 50MG ER [Concomitant]
  5. COQ10 CAP 100MG [Concomitant]
  6. FISH OIL CAP 1000MG [Concomitant]
  7. REPATHA [Suspect]
     Active Substance: EVOLOCUMAB
     Indication: HYPERLIPIDAEMIA
     Dosage: ?          OTHER FREQUENCY:EVERY TWO WEEKS;?
     Route: 058
  8. TRAZODONE [Concomitant]
     Active Substance: TRAZODONE HYDROCHLORIDE
  9. CRESTOR TAB 20MG [Concomitant]
  10. MULTIVITAMIN TAB [Concomitant]
  11. ASPIRIN TAB 325MG [Concomitant]
  12. BYETTA INJ 10MCG [Concomitant]
  13. TRICOR TAB 145MG [Concomitant]
  14. GELATIN CAP 650MG [Concomitant]
  15. LANTUS INJ 100/ML [Concomitant]
  16. TESTIM GEL 1% (50MG) [Concomitant]
  17. ABILIFY TAB 5MG [Concomitant]
  18. LYSINE CAP 500MG [Concomitant]
  19. VITAMIN B12 TAB 2000MCG [Concomitant]
  20. NEXIUM CAP 40MG [Concomitant]
  21. METFORMIN TAB 1000MG [Concomitant]
  22. CALCIUM 500MG TAB +D [Concomitant]

REACTIONS (2)
  - Therapy cessation [None]
  - Knee operation [None]

NARRATIVE: CASE EVENT DATE: 20181105
